FAERS Safety Report 16445786 (Version 1)
Quarter: 2019Q2

REPORT INFORMATION
  Report Type: Spontaneous
  Country: DE (occurrence: DE)
  Receive Date: 20190618
  Receipt Date: 20190618
  Transmission Date: 20190711
  Serious: Yes (Hospitalization)
  Sender: FDA-Public Use
  Company Number: DE-MYLANLABS-2019M1055994

PATIENT
  Age: 55 Year
  Sex: Male
  Weight: 79 kg

DRUGS (8)
  1. FORTOVASE                          /01288701/ [Concomitant]
     Dosage: 0.5 DOSAGE FORM, BID,(2 GRAM QD)
     Route: 048
     Dates: start: 20020115, end: 20020215
  2. VOLTAREN [Suspect]
     Active Substance: DICLOFENAC SODIUM
     Indication: PRODUCT USED FOR UNKNOWN INDICATION
     Dosage: 1 DOSAGE FORM, QD
     Route: 048
     Dates: start: 20020115, end: 20020125
  3. VIDEX [Concomitant]
     Active Substance: DIDANOSINE
     Dosage: 1 DF, QD
     Route: 048
     Dates: start: 20020115, end: 20020115
  4. ASPIRIN BAYER [Concomitant]
     Active Substance: ASPIRIN
     Dosage: 10 DOSAGE FORM, QY
     Route: 048
     Dates: start: 1980, end: 2002
  5. COTRIM [Concomitant]
     Active Substance: SULFAMETHOXAZOLE\TRIMETHOPRIM
     Dosage: UNK, UNK
     Dates: start: 200201, end: 20020217
  6. DICLOFENAC [Suspect]
     Active Substance: DICLOFENAC
     Indication: PRODUCT USED FOR UNKNOWN INDICATION
     Dosage: UNK, PRN
     Route: 048
     Dates: start: 20020209, end: 20020217
  7. ZERIT [Concomitant]
     Active Substance: STAVUDINE
     Dosage: 1 DOSAGE FORM, BID (2 DF,QD)
     Route: 048
     Dates: start: 20020115, end: 20020115
  8. NORVIR [Concomitant]
     Active Substance: RITONAVIR
     Dosage: 100 MILLIGRAM, QD,1 DF, QD
     Route: 048
     Dates: start: 20020115, end: 20020115

REACTIONS (9)
  - White blood cell count decreased [Unknown]
  - Shock symptom [Unknown]
  - Haematocrit decreased [Unknown]
  - Acute abdomen [Unknown]
  - Red blood cell count decreased [Unknown]
  - Generalised erythema [Unknown]
  - Platelet count decreased [Unknown]
  - Haemoglobin decreased [Unknown]
  - Agranulocytosis [Unknown]

NARRATIVE: CASE EVENT DATE: 20020217
